FAERS Safety Report 15432358 (Version 1)
Quarter: 2018Q3

REPORT INFORMATION
  Report Type: Spontaneous
  Country: US (occurrence: US)
  Receive Date: 20180926
  Receipt Date: 20180926
  Transmission Date: 20181010
  Serious: Yes (Hospitalization)
  Sender: FDA-Public Use
  Company Number: US-009507513-1809USA009215

PATIENT
  Age: 51 Year
  Sex: Female

DRUGS (2)
  1. PROVENTIL [Suspect]
     Active Substance: ALBUTEROL
     Indication: ASTHMA
     Dosage: TWO PUFFS, SOMETIMES ANOTHER TWO PUFFS 30 MINUTES LATER, OR WHEN NEEDED
     Route: 055
  2. ADVAIR HFA [Concomitant]
     Active Substance: FLUTICASONE PROPIONATE\SALMETEROL XINAFOATE

REACTIONS (6)
  - Cough [Not Recovered/Not Resolved]
  - Inappropriate schedule of drug administration [Unknown]
  - Weight increased [Not Recovered/Not Resolved]
  - Asthma [Not Recovered/Not Resolved]
  - Asthma [Not Recovered/Not Resolved]
  - Feeling jittery [Not Recovered/Not Resolved]

NARRATIVE: CASE EVENT DATE: 200010
